FAERS Safety Report 8873003 (Version 2)
Quarter: 2012Q4

REPORT INFORMATION
  Report Type: 
  Country: IT (occurrence: IT)
  Receive Date: 20121030
  Receipt Date: 20121205
  Transmission Date: 20130627
  Serious: Yes (Hospitalization)
  Sender: FDA-Public Use
  Company Number: IT-ROCHE-1150517

PATIENT
  Age: 78 Year
  Sex: Female

DRUGS (4)
  1. TORADOL [Suspect]
     Indication: PRODUCT USED FOR UNKNOWN INDICATION
     Route: 048
     Dates: start: 20121019, end: 20121019
  2. TORADOL [Suspect]
     Indication: DRUG ABUSE
  3. MUTABON [Suspect]
     Indication: PRODUCT USED FOR UNKNOWN INDICATION
     Route: 048
     Dates: start: 20121019, end: 20121019
  4. MUTABON [Suspect]
     Indication: DRUG ABUSE

REACTIONS (2)
  - Drug abuse [Unknown]
  - Sopor [Recovering/Resolving]
